FAERS Safety Report 24310584 (Version 2)
Quarter: 2024Q3

REPORT INFORMATION
  Report Type: Spontaneous
  Country: US (occurrence: US)
  Receive Date: 20240912
  Receipt Date: 20240927
  Transmission Date: 20241016
  Serious: No
  Sender: SANOFI AVENTIS
  Company Number: US-SA-2024SA259556

PATIENT
  Age: 80 Year
  Sex: Male

DRUGS (2)
  1. DUPIXENT [Suspect]
     Active Substance: DUPILUMAB
     Indication: Nasal polyps
     Dosage: 300 MG, QOW
     Route: 058
     Dates: start: 202406
  2. DUPIXENT [Suspect]
     Active Substance: DUPILUMAB
     Indication: Chronic sinusitis

REACTIONS (9)
  - Injection site mass [Unknown]
  - Fatigue [Unknown]
  - Dyspnoea [Unknown]
  - Oedema peripheral [Unknown]
  - White blood cell count increased [Unknown]
  - Eosinophil count increased [Unknown]
  - Myalgia [Unknown]
  - Arthralgia [Unknown]
  - Product use in unapproved indication [Unknown]

NARRATIVE: CASE EVENT DATE: 20240101
